FAERS Safety Report 8118394-2 (Version None)
Quarter: 2012Q1

REPORT INFORMATION
  Report Type: 
  Country: None (occurrence: None)
  Receive Date: 20120207
  Receipt Date: 20120124
  Transmission Date: 20120608
  Serious: Yes (Hospitalization)
  Sender: FDA-Public Use
  Company Number: GB-RANBAXY-2012R1-52240

PATIENT
  Age: 8 Month
  Sex: Female
  Weight: 7.5 kg

DRUGS (3)
  1. ACETAMINOPHEN [Concomitant]
     Indication: UPPER RESPIRATORY TRACT INFECTION
     Dosage: UNK
     Route: 048
     Dates: start: 20120109
  2. CLARITHROMYCIN [Suspect]
     Indication: UPPER RESPIRATORY TRACT INFECTION
     Dosage: UNK
     Route: 048
     Dates: start: 20120109, end: 20120110
  3. ATROVENT [Concomitant]
     Indication: UPPER RESPIRATORY TRACT INFECTION
     Dosage: UNK
     Route: 055
     Dates: start: 20120109

REACTIONS (1)
  - SUPRAVENTRICULAR TACHYCARDIA [None]
